FAERS Safety Report 4758684-4 (Version None)
Quarter: 2005Q3

REPORT INFORMATION
  Report Type: 
  Country: None (occurrence: None)
  Receive Date: 20050829
  Receipt Date: 20050729
  Transmission Date: 20060218
  Serious: Yes (Other)
  Sender: FDA-Public Use
  Company Number: 11949

PATIENT
  Age: 56 Year
  Sex: Female

DRUGS (8)
  1. METHOTREXATE [Suspect]
  2. AUGMENTIN '125' [Suspect]
  3. HUMIRA [Suspect]
  4. FLUOXETINE [Suspect]
  5. VIOXX [Suspect]
  6. CO-DYDRAMOL [Suspect]
  7. PREMARIN [Suspect]
  8. FLUCLOXACILLIN [Concomitant]

REACTIONS (1)
  - RETINAL HAEMORRHAGE [None]
